FAERS Safety Report 25263541 (Version 1)
Quarter: 2025Q2

REPORT INFORMATION
  Report Type: Spontaneous
  Country: US (occurrence: US)
  Receive Date: 20250502
  Receipt Date: 20250502
  Transmission Date: 20250717
  Serious: Yes (Other)
  Sender: MYLAN
  Company Number: US-MYLANLABS-2025M1036641

PATIENT
  Age: 39 Year
  Sex: Male

DRUGS (16)
  1. MESALAMINE [Suspect]
     Active Substance: MESALAMINE
     Indication: Colitis
  2. MESALAMINE [Suspect]
     Active Substance: MESALAMINE
     Route: 065
  3. MESALAMINE [Suspect]
     Active Substance: MESALAMINE
     Route: 065
  4. MESALAMINE [Suspect]
     Active Substance: MESALAMINE
  5. TACROLIMUS [Suspect]
     Active Substance: TACROLIMUS
     Indication: Colitis
  6. TACROLIMUS [Suspect]
     Active Substance: TACROLIMUS
     Route: 065
  7. TACROLIMUS [Suspect]
     Active Substance: TACROLIMUS
     Route: 065
  8. TACROLIMUS [Suspect]
     Active Substance: TACROLIMUS
  9. VANCOMYCIN [Concomitant]
     Active Substance: VANCOMYCIN
     Indication: Colitis
     Dosage: 250 MILLIGRAM, BID
  10. VANCOMYCIN [Concomitant]
     Active Substance: VANCOMYCIN
     Dosage: 250 MILLIGRAM, BID
  11. VANCOMYCIN [Concomitant]
     Active Substance: VANCOMYCIN
     Dosage: 250 MILLIGRAM, BID
     Route: 048
  12. VANCOMYCIN [Concomitant]
     Active Substance: VANCOMYCIN
     Dosage: 250 MILLIGRAM, BID
     Route: 048
  13. VANCOMYCIN [Concomitant]
     Active Substance: VANCOMYCIN
  14. VANCOMYCIN [Concomitant]
     Active Substance: VANCOMYCIN
  15. VANCOMYCIN [Concomitant]
     Active Substance: VANCOMYCIN
     Route: 048
  16. VANCOMYCIN [Concomitant]
     Active Substance: VANCOMYCIN
     Route: 048

REACTIONS (2)
  - Drug ineffective [Unknown]
  - Off label use [Unknown]
